FAERS Safety Report 22053204 (Version 1)
Quarter: 2023Q1

REPORT INFORMATION
  Report Type: Spontaneous
  Country: US (occurrence: US)
  Receive Date: 20230302
  Receipt Date: 20230302
  Transmission Date: 20230417
  Serious: Yes (Other)
  Sender: FDA-Public Use
  Company Number: US-CHEPLA-2023002855

PATIENT

DRUGS (1)
  1. CLONAZEPAM [Suspect]
     Active Substance: CLONAZEPAM
     Indication: Product used for unknown indication
     Dosage: 2 MG BARS THREE TIMES A DAY FOR THE PAST 17 YEARS.?DAILY DOSE: 6 MILLIGRAM

REACTIONS (1)
  - Myocardial infarction [Unknown]
